FAERS Safety Report 7490560-9 (Version None)
Quarter: 2011Q2

REPORT INFORMATION
  Report Type: 
  Country: None (occurrence: None)
  Receive Date: 20110512
  Receipt Date: 20110428
  Transmission Date: 20111010
  Serious: No
  Sender: FDA-Public Use
  Company Number: 2011-00478

PATIENT
  Age: 74 Year
  Sex: Male
  Weight: 108.8633 kg

DRUGS (4)
  1. MAGNESIUM CITRATE (TABLETS) [Concomitant]
  2. LISINOPRIL [Suspect]
     Indication: HYPERTENSION
     Dosage: 2.5 MG (2.5 MG,1 IN 1 D),PER ORAL
     Route: 048
     Dates: start: 20100401
  3. MULTIVITAMIN (TABLETS) [Concomitant]
  4. CALCIUM CITRATE (TABLETS) [Concomitant]

REACTIONS (2)
  - BLOOD ALUMINIUM INCREASED [None]
  - CHEMICAL POISONING [None]
